FAERS Safety Report 22386448 (Version 2)
Quarter: 2023Q2

REPORT INFORMATION
  Report Type: Spontaneous
  Country: US (occurrence: US)
  Receive Date: 20230531
  Receipt Date: 20230608
  Transmission Date: 20230722
  Serious: Yes (Life-Threatening, Hospitalization, Other)
  Sender: FDA-Public Use
  Company Number: None

PATIENT
  Age: 56 Year
  Sex: Male

DRUGS (4)
  1. IBUPROFEN [Suspect]
     Active Substance: IBUPROFEN
     Indication: Back pain
     Dosage: UNK
     Route: 065
  2. IBUPROFEN [Suspect]
     Active Substance: IBUPROFEN
     Indication: Drug provocation test
     Dosage: 400 MILLIGRAM
     Route: 065
  3. IBUPROFEN [Suspect]
     Active Substance: IBUPROFEN
     Dosage: UNK (400-800MG SPORADICALLY OVER 2-3 WEEKS; BASELINE IBUPROFEN USE WAS 200-400 MG ONCE TO TWICE PER
     Route: 065
  4. IBUPROFEN [Suspect]
     Active Substance: IBUPROFEN
     Dosage: 2 MILLIGRAM; FOR CHALLENGE TEST (FIRST DOSE)
     Route: 065

REACTIONS (7)
  - Kounis syndrome [Recovered/Resolved]
  - Posturing [Recovered/Resolved]
  - Respiratory distress [Recovered/Resolved]
  - Anaphylactic reaction [Recovered/Resolved]
  - Angioedema [Recovered/Resolved]
  - Urticaria [Recovered/Resolved]
  - Cardiac arrest [Recovered/Resolved]
